FAERS Safety Report 5453822-2 (Version None)
Quarter: 2007Q3

REPORT INFORMATION
  Report Type: 
  Country: None (occurrence: None)
  Receive Date: 20070917
  Receipt Date: 20070910
  Transmission Date: 20080115
  Serious: Yes (Hospitalization)
  Sender: FDA-Public Use
  Company Number: A0680150A

PATIENT
  Age: 33 Year
  Sex: Male

DRUGS (4)
  1. LAMICTAL [Suspect]
     Indication: BIPOLAR DISORDER
     Dosage: 200MG PER DAY
     Route: 048
     Dates: start: 20040101, end: 20070501
  2. PAXIL [Suspect]
     Route: 048
     Dates: start: 20040101, end: 20040101
  3. XANAX [Concomitant]
  4. ALBUTEROL [Concomitant]

REACTIONS (11)
  - AGITATION [None]
  - COLD SWEAT [None]
  - DEPRESSED MOOD [None]
  - DEPRESSION [None]
  - DISTURBANCE IN ATTENTION [None]
  - HYPERTENSION [None]
  - ILL-DEFINED DISORDER [None]
  - INSOMNIA [None]
  - MOOD ALTERED [None]
  - NERVOUSNESS [None]
  - PYREXIA [None]
